FAERS Safety Report 9425173 (Version 1)
Quarter: 2013Q3

REPORT INFORMATION
  Report Type: Spontaneous
  Country: US (occurrence: US)
  Receive Date: 20130729
  Receipt Date: 20130729
  Transmission Date: 20140515
  Serious: Yes (Hospitalization, Disabling, Other)
  Sender: FDA-Public Use
  Company Number: US-PFIZER INC-2013216539

PATIENT
  Sex: Female
  Weight: 91 kg

DRUGS (2)
  1. SULFASALAZINE [Suspect]
     Indication: ARTHRALGIA
     Dosage: UNK
     Dates: start: 2013, end: 2013
  2. LAMICTAL [Concomitant]
     Indication: CONVULSION
     Dosage: UNK

REACTIONS (2)
  - Drug reaction with eosinophilia and systemic symptoms [Unknown]
  - Impaired work ability [Unknown]
